FAERS Safety Report 25229279 (Version 1)
Quarter: 2025Q2

REPORT INFORMATION
  Report Type: Spontaneous
  Country: US (occurrence: None)
  Receive Date: 20250422
  Receipt Date: 20250422
  Transmission Date: 20250717
  Serious: Yes (Other)
  Sender: FDA-CTU
  Company Number: None

PATIENT
  Age: 76 Year
  Sex: Female

DRUGS (2)
  1. FORTEO [Suspect]
     Active Substance: TERIPARATIDE
     Indication: Osteoporosis
     Dosage: FREQUENCY : DAILY;?
     Route: 058
     Dates: start: 20240509
  2. FORTEO [Suspect]
     Active Substance: TERIPARATIDE
     Indication: Pathological fracture

REACTIONS (2)
  - Cerebrovascular accident [None]
  - Therapy cessation [None]

NARRATIVE: CASE EVENT DATE: 20250411
